FAERS Safety Report 19438276 (Version 5)
Quarter: 2021Q3

REPORT INFORMATION
  Report Type: Report from Study
  Country: DE (occurrence: DE)
  Receive Date: 20210618
  Receipt Date: 20210720
  Transmission Date: 20211014
  Serious: Yes (Life-Threatening, Hospitalization, Other)
  Sender: FDA-Public Use
  Company Number: DE-PFIZER INC-2021685918

PATIENT
  Age: 82 Year
  Sex: Female
  Weight: 55 kg

DRUGS (7)
  1. MCP [Concomitant]
     Active Substance: METOCLOPRAMIDE HYDROCHLORIDE
     Indication: PAIN
     Dosage: UNK
     Route: 065
     Dates: start: 20210430
  2. HYDROMORPHONE [Concomitant]
     Active Substance: HYDROMORPHONE
     Indication: ANALGESIC THERAPY
     Dosage: UNK
     Route: 048
     Dates: end: 20210429
  3. PANTOPRAZOLE [Suspect]
     Active Substance: PANTOPRAZOLE
     Indication: PROPHYLAXIS
     Dosage: 40 MG (1?0?0)
     Route: 048
     Dates: end: 20210429
  4. ENOXAPARIN [Concomitant]
     Active Substance: ENOXAPARIN
     Indication: DEEP VEIN THROMBOSIS
     Dosage: UNK
     Route: 058
     Dates: start: 20210422
  5. CETUXIMAB. [Suspect]
     Active Substance: CETUXIMAB
     Indication: COLORECTAL CANCER
     Dosage: 600 MG/M2, QD (1/DAY)
     Route: 042
     Dates: start: 20210429, end: 20210430
  6. METAMIZOL [Concomitant]
     Active Substance: METAMIZOLE SODIUM
     Indication: ANALGESIC THERAPY
     Dosage: UNK
     Route: 048
     Dates: end: 20210429
  7. BRAFTOVI [Suspect]
     Active Substance: ENCORAFENIB
     Indication: COLORECTAL CANCER
     Dosage: 150 MG/DAY
     Route: 048
     Dates: start: 20210429, end: 20210430

REACTIONS (2)
  - Abdominal pain [Unknown]
  - Mechanical ileus [Not Recovered/Not Resolved]

NARRATIVE: CASE EVENT DATE: 20210430
